FAERS Safety Report 8116377-X (Version None)
Quarter: 2012Q1

REPORT INFORMATION
  Report Type: 
  Country: None (occurrence: None)
  Receive Date: 20120206
  Receipt Date: 20120130
  Transmission Date: 20120608
  Serious: Yes (Other)
  Sender: FDA-Public Use
  Company Number: JP-GLAXOSMITHKLINE-B0775366A

PATIENT
  Sex: Male

DRUGS (2)
  1. PAXIL [Suspect]
     Indication: PANIC DISORDER
     Dosage: 20MG PER DAY
     Route: 048
     Dates: start: 20120104, end: 20120105
  2. ALPRAZOLAM [Concomitant]
     Dosage: 1.2MG PER DAY
     Route: 048
     Dates: start: 20100324

REACTIONS (6)
  - DECREASED APPETITE [None]
  - THIRST [None]
  - SYNCOPE [None]
  - DIZZINESS [None]
  - LOSS OF CONSCIOUSNESS [None]
  - MALAISE [None]
